FAERS Safety Report 10525626 (Version 5)
Quarter: 2015Q1

REPORT INFORMATION
  Report Type: Report from Study
  Country: CA (occurrence: CA)
  Receive Date: 20141017
  Receipt Date: 20150130
  Transmission Date: 20150720
  Serious: Yes (Other)
  Sender: FDA-Public Use
  Company Number: PHHY2014CA024969

PATIENT
  Sex: Female

DRUGS (3)
  1. SANDOSTATIN LAR DEPOT [Suspect]
     Active Substance: OCTREOTIDE ACETATE
     Indication: PITUITARY TUMOUR BENIGN
     Dosage: 20 MG, EVERY 6 WEEKS
     Route: 030
     Dates: start: 20140225
  2. SANDOSTATIN [Suspect]
     Active Substance: OCTREOTIDE ACETATE
     Indication: PITUITARY TUMOUR BENIGN
     Dosage: UNK, ONCE/SINGLE (TEST DOSE)
     Route: 058
     Dates: start: 20140213, end: 20140213
  3. SANDOSTATIN LAR DEPOT [Suspect]
     Active Substance: OCTREOTIDE ACETATE
     Dosage: 20 MG, EVERY 4 WEEKS
     Route: 030

REACTIONS (5)
  - Ventricular extrasystoles [Unknown]
  - Injection site pruritus [Unknown]
  - Cardiac flutter [Unknown]
  - Heart rate irregular [Unknown]
  - Pallor [Unknown]

NARRATIVE: CASE EVENT DATE: 2014
